FAERS Safety Report 14448073 (Version 4)
Quarter: 2018Q1

REPORT INFORMATION
  Report Type: Report from Study
  Country: MX (occurrence: MX)
  Receive Date: 20180126
  Receipt Date: 20180220
  Transmission Date: 20180509
  Serious: Yes (Death)
  Sender: FDA-Public Use
  Company Number: PHHY2014MX026075

PATIENT
  Sex: Female

DRUGS (10)
  1. AMARIL [Concomitant]
     Indication: DIABETES MELLITUS
     Dosage: 1 MG, QD
     Route: 065
  2. OMEPRAZOLE. [Concomitant]
     Active Substance: OMEPRAZOLE
     Indication: GASTRITIS
  3. STALEVO [Suspect]
     Active Substance: CARBIDOPA\ENTACAPONE\LEVODOPA
     Dosage: 0.5 DF (CARBIDOPA 25 MG, ENTACAPONE 200 MG, LEVODOPA 100 MG), QD (STOPPED ON 10 DEC 2017)
     Route: 048
     Dates: start: 2010
  4. GLIMEPIRIDE. [Suspect]
     Active Substance: GLIMEPIRIDE
     Indication: DIABETES MELLITUS
     Dosage: 1 MG, QD (STOPPED ON 10 DEC 2017)
     Route: 065
     Dates: start: 2010
  5. FUROSEMIDE. [Concomitant]
     Active Substance: FUROSEMIDE
     Indication: DIURETIC THERAPY
     Dosage: 1 MG, DAILY
     Route: 065
     Dates: start: 201311
  6. OMEPRAZOLE. [Concomitant]
     Active Substance: OMEPRAZOLE
     Indication: COLITIS
     Dosage: 1 UKN, DAILY
     Route: 065
  7. STALEVO [Suspect]
     Active Substance: CARBIDOPA\ENTACAPONE\LEVODOPA
     Indication: PARKINSON^S DISEASE
     Dosage: 1 DF (CARBIDOPA 25 MG, ENTACAPONE 200 MG, LEVODOPA 100 MG), QD
     Route: 048
     Dates: start: 200801, end: 2010
  8. CINITAPRIDE [Concomitant]
     Indication: DYSPEPSIA
     Dosage: UNK UNK, BID
     Route: 065
  9. METFORMIN [Suspect]
     Active Substance: METFORMIN HYDROCHLORIDE
     Indication: DIABETES MELLITUS
     Dosage: 1 DF, QD (STOPPED ON 10 DEC 2017)
     Route: 048
     Dates: start: 2008
  10. BREWER^S YEAST [Concomitant]
     Indication: PRODUCT USED FOR UNKNOWN INDICATION
     Route: 065

REACTIONS (7)
  - Chronic obstructive pulmonary disease [Fatal]
  - Tremor [Recovering/Resolving]
  - Wrong technique in product usage process [Unknown]
  - Memory impairment [Recovering/Resolving]
  - Oxygen consumption increased [Unknown]
  - Drug prescribing error [Unknown]
  - Blood glucose increased [Recovered/Resolved]

NARRATIVE: CASE EVENT DATE: 2010
